FAERS Safety Report 5263388-8 (Version None)
Quarter: 2007Q1

REPORT INFORMATION
  Report Type: 
  Country: None (occurrence: None)
  Receive Date: 20070309
  Receipt Date: 20070309
  Transmission Date: 20070707
  Serious: Yes (Other)
  Sender: FDA-Public Use
  Company Number: None

PATIENT
  Sex: Male
  Weight: 102.0593 kg

DRUGS (1)
  1. TRANDOLAPRIL [Suspect]
     Indication: BLOOD PRESSURE
     Dosage: 4MG  ONCE DAILY  PO
     Route: 048
     Dates: start: 20070224, end: 20070308

REACTIONS (2)
  - BLOOD PRESSURE FLUCTUATION [None]
  - THERAPEUTIC RESPONSE UNEXPECTED WITH DRUG SUBSTITUTION [None]
